FAERS Safety Report 6149928-5 (Version None)
Quarter: 2009Q2

REPORT INFORMATION
  Report Type: 
  Country: None (occurrence: None)
  Receive Date: 20090407
  Receipt Date: 20090407
  Transmission Date: 20091009
  Serious: Yes (Other)
  Sender: FDA-Public Use
  Company Number: None

PATIENT
  Age: 39 Year
  Sex: Male
  Weight: 90.7194 kg

DRUGS (3)
  1. CLARITHROMYCIN [Suspect]
     Indication: INFLUENZA
     Dosage: 1 CAPSULE 2 TIMES DAILY PO
     Route: 048
     Dates: start: 20090316, end: 20090323
  2. CPM-EPHD 8-120 MG CAP GENERIC [Suspect]
     Indication: INFLUENZA
     Dosage: 1 TABLET 2 TIMES DAILY PO
     Route: 048
  3. CPM-EPHD 8-120 MG CAP GENERIC [Suspect]
     Indication: MULTIPLE ALLERGIES
     Dosage: 1 TABLET 2 TIMES DAILY PO
     Route: 048

REACTIONS (4)
  - HYPERHIDROSIS [None]
  - INFECTION [None]
  - MALAISE [None]
  - NIGHT SWEATS [None]
